FAERS Safety Report 25185251 (Version 1)
Quarter: 2025Q2

REPORT INFORMATION
  Report Type: Report from Study
  Country: US (occurrence: US)
  Receive Date: 20250410
  Receipt Date: 20250410
  Transmission Date: 20250716
  Serious: Yes (Other)
  Sender: PFIZER
  Company Number: US-PFIZER INC-202500076270

PATIENT
  Age: 56 Year
  Sex: Female

DRUGS (6)
  1. LORBRENA [Suspect]
     Active Substance: LORLATINIB
     Dosage: 100 MG, ONE TABLET ONCE DAILY
     Route: 048
     Dates: start: 20250331
  2. ELIQUIS [Concomitant]
     Active Substance: APIXABAN
  3. TYLENOL [Concomitant]
     Active Substance: ACETAMINOPHEN
  4. METFORMIN HYDROCHLORIDE [Concomitant]
     Active Substance: METFORMIN HYDROCHLORIDE
  5. ATENOLOL [Concomitant]
     Active Substance: ATENOLOL
  6. COMPAZINE [Concomitant]
     Active Substance: PROCHLORPERAZINE MALEATE

REACTIONS (1)
  - Hallucination [Unknown]
